FAERS Safety Report 23804147 (Version 6)
Quarter: 2025Q1

REPORT INFORMATION
  Report Type: Report from Study
  Country: CA (occurrence: CA)
  Receive Date: 20240501
  Receipt Date: 20250213
  Transmission Date: 20250408
  Serious: Yes (Hospitalization)
  Sender: JOHNSON AND JOHNSON
  Company Number: CA-JNJFOC-20240339822

PATIENT
  Age: 62 Year
  Sex: Female
  Weight: 50 kg

DRUGS (5)
  1. REMICADE [Suspect]
     Active Substance: INFLIXIMAB
     Indication: Crohn^s disease
     Route: 041
     Dates: start: 20080806
  2. REMICADE [Suspect]
     Active Substance: INFLIXIMAB
     Route: 041
     Dates: start: 2007
  3. REMICADE [Suspect]
     Active Substance: INFLIXIMAB
     Dosage: EXPIRY DATE: 10-2026 X4
     Route: 041
     Dates: start: 20080806
  4. REMICADE [Suspect]
     Active Substance: INFLIXIMAB
     Route: 041
  5. AMLODIPINE [Concomitant]
     Active Substance: AMLODIPINE BESYLATE

REACTIONS (8)
  - Colectomy total [Recovered/Resolved]
  - Depressed mood [Recovered/Resolved]
  - General physical health deterioration [Recovered/Resolved]
  - Rash [Recovered/Resolved]
  - Alopecia [Recovered/Resolved]
  - Discomfort [Recovered/Resolved]
  - Weight decreased [Recovered/Resolved]
  - Asthenia [Recovered/Resolved]

NARRATIVE: CASE EVENT DATE: 20240301
